FAERS Safety Report 10202099 (Version 1)
Quarter: 2014Q2

REPORT INFORMATION
  Report Type: Spontaneous
  Country: US (occurrence: US)
  Receive Date: 20140528
  Receipt Date: 20140528
  Transmission Date: 20141212
  Serious: No
  Sender: FDA-Public Use
  Company Number: US-BRISTOL-MYERS SQUIBB COMPANY-19922988

PATIENT
  Age: 69 Year
  Sex: Female
  Weight: 74.83 kg

DRUGS (3)
  1. SYMLINPEN [Suspect]
     Indication: TYPE 2 DIABETES MELLITUS
  2. METFORMIN HCL TABS 500MG [Suspect]
     Route: 048
  3. INVOKANA [Suspect]
     Route: 048

REACTIONS (1)
  - Blood glucose increased [Not Recovered/Not Resolved]
